FAERS Safety Report 12298489 (Version 1)
Quarter: 2016Q2

REPORT INFORMATION
  Report Type: Other
  Country: US (occurrence: US)
  Receive Date: 20160425
  Receipt Date: 20160425
  Transmission Date: 20160815
  Serious: Yes (Hospitalization)
  Sender: FDA-Public Use
  Company Number: US-BRECKENRIDGE PHARMACEUTICAL, INC.-1050938

PATIENT

DRUGS (1)
  1. DULOXETHINE [Suspect]
     Active Substance: DULOXETINE

REACTIONS (1)
  - Encephalopathy [Recovered/Resolved]
